FAERS Safety Report 12759203 (Version 1)
Quarter: 2016Q3

REPORT INFORMATION
  Report Type: Spontaneous
  Country: US (occurrence: US)
  Receive Date: 20160915
  Receipt Date: 20160915
  Transmission Date: 20161109
  Serious: No
  Sender: FDA-Public Use
  Company Number: None

PATIENT
  Age: 68 Year
  Sex: Female

DRUGS (1)
  1. FORTEO [Suspect]
     Active Substance: TERIPARATIDE
     Indication: OSTEOPOROSIS
     Route: 058
     Dates: start: 20151022, end: 20160819

REACTIONS (7)
  - Skin necrosis [None]
  - Fatigue [None]
  - Anger [None]
  - Jaundice [None]
  - Hepatic function abnormal [None]
  - Anxiety [None]
  - Dementia [None]

NARRATIVE: CASE EVENT DATE: 20160819
